FAERS Safety Report 9665160 (Version 2)
Quarter: 2013Q4

REPORT INFORMATION
  Report Type: Spontaneous
  Country: US (occurrence: US)
  Receive Date: 20131101
  Receipt Date: 20131107
  Transmission Date: 20140711
  Serious: No
  Sender: FDA-Public Use
  Company Number: US-PFIZER INC-2013310439

PATIENT
  Age: 64 Year
  Sex: Female
  Weight: 55.78 kg

DRUGS (5)
  1. CHANTIX [Suspect]
     Indication: SMOKING CESSATION THERAPY
     Dosage: 0.5 MG, 1X/DAY
     Route: 048
     Dates: start: 20131018, end: 201310
  2. CHANTIX [Suspect]
     Dosage: 1 MG, 2X/DAY
     Route: 048
     Dates: start: 201310
  3. DOXYCYCLINE [Concomitant]
     Indication: FUNGAL SKIN INFECTION
     Dosage: 100 MG, UNK
     Dates: end: 201310
  4. HYDROXYZINE [Concomitant]
     Dosage: 25 MG, UNK
     Dates: end: 201310
  5. FLUTICASONE [Concomitant]
     Dosage: UNK
     Route: 045
     Dates: end: 201310

REACTIONS (6)
  - Headache [Unknown]
  - Discomfort [Unknown]
  - Feeling abnormal [Unknown]
  - Malaise [Unknown]
  - Eating disorder [Unknown]
  - Feeling abnormal [Unknown]
